FAERS Safety Report 18856543 (Version 1)
Quarter: 2021Q1

REPORT INFORMATION
  Report Type: Spontaneous
  Country: BE (occurrence: BE)
  Receive Date: 20210207
  Receipt Date: 20210207
  Transmission Date: 20210420
  Serious: Yes (Congenital Anomaly, Other)
  Sender: FDA-Public Use
  Company Number: BE-TAKEDA-2021TUS007409

PATIENT

DRUGS (1)
  1. ENTYVIO [Suspect]
     Active Substance: VEDOLIZUMAB
     Indication: PRODUCT USED FOR UNKNOWN INDICATION
     Dosage: 300 MILLIGRAM
     Route: 064
     Dates: start: 201706

REACTIONS (2)
  - Foetal exposure during pregnancy [Unknown]
  - Hydrops foetalis [Unknown]

NARRATIVE: CASE EVENT DATE: 20210114
